FAERS Safety Report 18834278 (Version 3)
Quarter: 2021Q1

REPORT INFORMATION
  Report Type: Spontaneous
  Country: CA (occurrence: CA)
  Receive Date: 20210203
  Receipt Date: 20210326
  Transmission Date: 20210419
  Serious: No
  Sender: FDA-Public Use
  Company Number: CA-TOLMAR, INC.-21CA025144

PATIENT

DRUGS (1)
  1. ELIGARD [Suspect]
     Active Substance: LEUPROLIDE ACETATE
     Indication: PRODUCT USED FOR UNKNOWN INDICATION
     Dosage: 45 MG, Q 6 MONTH
     Route: 065
     Dates: start: 20200902

REACTIONS (1)
  - Blood testosterone increased [Not Recovered/Not Resolved]

NARRATIVE: CASE EVENT DATE: 20201207
